FAERS Safety Report 7013079-8 (Version None)
Quarter: 2010Q3

REPORT INFORMATION
  Report Type: 
  Country: None (occurrence: None)
  Receive Date: 20100924
  Receipt Date: 20100914
  Transmission Date: 20110219
  Serious: Yes (Other)
  Sender: FDA-Public Use
  Company Number: DE-PFIZER INC-2010111448

PATIENT
  Age: 45 Year
  Sex: Female
  Weight: 78 kg

DRUGS (3)
  1. LYRICA [Suspect]
     Indication: BACK PAIN
     Dosage: 225 MG DAILY (1-0-2)
     Route: 048
     Dates: start: 20081126
  2. LYRICA [Suspect]
     Indication: NECK PAIN
  3. VENLAFAXINE [Concomitant]
     Dosage: UNK
     Dates: start: 20000101

REACTIONS (4)
  - EYELID OEDEMA [None]
  - PHOTOPHOBIA [None]
  - PRURITUS [None]
  - RASH [None]
